FAERS Safety Report 4414998-9 (Version None)
Quarter: 2004Q3

REPORT INFORMATION
  Report Type: 
  Country: None (occurrence: None)
  Receive Date: 20040726
  Receipt Date: 20040712
  Transmission Date: 20050211
  Serious: Yes (Hospitalization)
  Sender: FDA-Public Use
  Company Number: 601143

PATIENT
  Age: 51 Year
  Sex: Male

DRUGS (2)
  1. ADVATE (ANTIHEMOPHILIC FACTOR (RECOMBINANT), PLASMA/ALBUMIN FREE METHO [Suspect]
     Indication: FACTOR VIII DEFICIENCY
     Dosage: 1000 UNITS
     Dates: start: 20040312, end: 20040312
  2. ADVATE (ANTIHEMOPHILIC FACTOR (RECOMBINANT), PLASMA/ALBUMIN FREE METHO [Suspect]

REACTIONS (3)
  - ANAPHYLACTIC REACTION [None]
  - BLOOD PRESSURE INCREASED [None]
  - RHINITIS [None]
